FAERS Safety Report 6081576-8 (Version None)
Quarter: 2009Q1

REPORT INFORMATION
  Report Type: 
  Country: None (occurrence: None)
  Receive Date: 20090218
  Receipt Date: 20090210
  Transmission Date: 20090719
  Serious: Yes (Other)
  Sender: FDA-Public Use
  Company Number: PHEH2009US01371

PATIENT
  Age: 78 Year
  Sex: Male

DRUGS (12)
  1. ZOMETA [Suspect]
     Indication: PROSTATE CANCER
     Dosage: 3.3-4 MG IV Q MONTHLY
     Dates: start: 20061201, end: 20081001
  2. ZOMETA [Suspect]
     Indication: METASTATIC NEOPLASM
  3. LEXAPRO [Concomitant]
     Dosage: UNK
     Dates: start: 20081101
  4. ZOCOR [Concomitant]
     Indication: HYPERCHOLESTEROLAEMIA
     Dosage: 40 MG, QD
  5. ASPIRIN [Concomitant]
  6. LISINOPRIL [Concomitant]
     Indication: HYPERTENSION
     Dosage: 10 MG, QD
  7. KETOCONAZOLE [Concomitant]
     Indication: PROSTATE CANCER
     Dosage: 400 MG, BID
  8. LUPRON [Concomitant]
     Indication: PROSTATE CANCER
     Dosage: 22.3 MG Q3MONTHS
     Dates: start: 20050101
  9. AMBIEN [Concomitant]
     Indication: INSOMNIA
     Dosage: 5 MG, HS PRN
  10. CASODEX [Concomitant]
     Indication: PROSTATE CANCER
     Dosage: 50 MG, QD
  11. TIAZAC [Concomitant]
     Dosage: 180 MG, QD
  12. ZOLADEX [Concomitant]
     Indication: PROSTATE CANCER
     Dosage: UNK
     Dates: start: 20020101, end: 20050101

REACTIONS (2)
  - BONE DISORDER [None]
  - OSTEONECROSIS [None]
